FAERS Safety Report 25900496 (Version 1)
Quarter: 2025Q4

REPORT INFORMATION
  Report Type: Spontaneous
  Country: CN (occurrence: CN)
  Receive Date: 20251009
  Receipt Date: 20251009
  Transmission Date: 20260117
  Serious: Yes (Life-Threatening, Hospitalization)
  Sender: MYLAN
  Company Number: CN-MYLANLABS-2025M1085504

PATIENT
  Age: 58 Year
  Sex: Female

DRUGS (3)
  1. METFORMIN [Suspect]
     Active Substance: METFORMIN HYDROCHLORIDE
     Indication: Product used for unknown indication
     Dosage: UNK
  2. ENALAPRIL [Suspect]
     Active Substance: ENALAPRIL
     Indication: Product used for unknown indication
     Dosage: UNK
  3. RESERPINE [Suspect]
     Active Substance: RESERPINE
     Indication: Product used for unknown indication
     Dosage: UNK

REACTIONS (6)
  - Hypoglycaemia [Recovering/Resolving]
  - Multiple organ dysfunction syndrome [Recovering/Resolving]
  - Shock [Recovering/Resolving]
  - Metabolic acidosis [Recovering/Resolving]
  - Toxicity to various agents [Recovering/Resolving]
  - Intentional overdose [Recovering/Resolving]
